FAERS Safety Report 18854869 (Version 1)
Quarter: 2021Q1

REPORT INFORMATION
  Report Type: Report from Study
  Country: US (occurrence: US)
  Receive Date: 20210205
  Receipt Date: 20210205
  Transmission Date: 20210420
  Serious: Yes (Other)
  Sender: FDA-Public Use
  Company Number: US-JNJFOC-20201215973

PATIENT
  Age: 63 Year
  Sex: Female
  Weight: 99.1 kg

DRUGS (2)
  1. EPOPROSTENOL SODIUM. [Suspect]
     Active Substance: EPOPROSTENOL SODIUM
     Indication: PULMONARY ARTERIAL HYPERTENSION
     Dosage: 3.08 NG/KG/MIN
     Route: 042
  2. MACITENTAN [Suspect]
     Active Substance: MACITENTAN
     Indication: PULMONARY ARTERIAL HYPERTENSION
     Route: 065
     Dates: start: 20200928

REACTIONS (7)
  - Pruritus [Unknown]
  - Fatigue [Unknown]
  - Pain in jaw [Unknown]
  - Device related infection [Unknown]
  - Catheter site discharge [Unknown]
  - Skin discolouration [Unknown]
  - Urticaria [Unknown]
